FAERS Safety Report 13809349 (Version 2)
Quarter: 2017Q3

REPORT INFORMATION
  Report Type: Report from Study
  Country: US (occurrence: US)
  Receive Date: 20170728
  Receipt Date: 20170729
  Transmission Date: 20171127
  Serious: No
  Sender: FDA-Public Use
  Company Number: US-AMGEN-USASL2017076780

PATIENT
  Age: 72 Year
  Sex: Male

DRUGS (2)
  1. REPATHA [Suspect]
     Active Substance: EVOLOCUMAB
     Indication: HYPERCHOLESTEROLAEMIA
     Dosage: 420 MG, QMO
     Route: 065
  2. REPATHA [Suspect]
     Active Substance: EVOLOCUMAB
     Indication: ARTERIOSCLEROSIS

REACTIONS (6)
  - Arthralgia [Unknown]
  - Epicondylitis [Unknown]
  - Metatarsalgia [Unknown]
  - Tendonitis [Unknown]
  - Myalgia [Unknown]
  - Arthritis [Unknown]

NARRATIVE: CASE EVENT DATE: 2016
